FAERS Safety Report 4275904-3 (Version None)
Quarter: 2004Q1

REPORT INFORMATION
  Report Type: 
  Country: None (occurrence: None)
  Receive Date: 20040121
  Receipt Date: 20030303
  Transmission Date: 20041129
  Serious: No
  Sender: FDA-Public Use
  Company Number: US-GLAXOSMITHKLINE-A0398656A

PATIENT
  Sex: Male

DRUGS (3)
  1. VALTREX [Suspect]
     Route: 048
  2. LIPITOR [Concomitant]
     Dosage: 65MG UNKNOWN
  3. ASPIRIN [Concomitant]
     Route: 048

REACTIONS (2)
  - COAGULOPATHY [None]
  - EPISTAXIS [None]
